FAERS Safety Report 18524415 (Version 4)
Quarter: 2022Q2

REPORT INFORMATION
  Report Type: Spontaneous
  Country: ES (occurrence: ES)
  Receive Date: 20201120
  Receipt Date: 20220606
  Transmission Date: 20220721
  Serious: Yes (Other)
  Sender: FDA-Public Use
  Company Number: ES-SUN PHARMACEUTICAL INDUSTRIES LTD-2020R1-268266

PATIENT
  Age: 36 Year
  Sex: Female

DRUGS (2)
  1. ISOTRETINOIN [Suspect]
     Active Substance: ISOTRETINOIN
     Indication: Acne
     Dosage: 10 MILLIGRAM, DAILY
     Route: 048
     Dates: start: 200901, end: 201004
  2. ISOTRETINOIN [Suspect]
     Active Substance: ISOTRETINOIN
     Dosage: CYCLICAL
     Route: 065
     Dates: start: 1995

REACTIONS (3)
  - Diffuse idiopathic skeletal hyperostosis [Recovering/Resolving]
  - Enthesopathy [Recovering/Resolving]
  - Enthesopathy [Recovering/Resolving]

NARRATIVE: CASE EVENT DATE: 20080101
